FAERS Safety Report 6564015-X (Version None)
Quarter: 2010Q1

REPORT INFORMATION
  Report Type: 
  Country: None (occurrence: None)
  Receive Date: 20100131
  Receipt Date: 20100121
  Transmission Date: 20100710
  Serious: No
  Sender: FDA-Public Use
  Company Number: US-ALLERGAN-0917512US

PATIENT
  Age: 40 Year
  Sex: Female

DRUGS (5)
  1. BOTOX COSMETIC [Suspect]
     Indication: SKIN WRINKLING
     Dosage: 30 UNITS, SINGLE
     Route: 030
     Dates: start: 20091209, end: 20091209
  2. BOTOX COSMETIC [Suspect]
     Dosage: 12 UNK, UNK
     Route: 030
     Dates: start: 20080301, end: 20080301
  3. BOTOX COSMETIC [Suspect]
     Dosage: 24 UNITS, SINGLE
     Route: 030
     Dates: start: 20080802, end: 20080802
  4. BOTOX COSMETIC [Suspect]
     Dosage: 40 UNITS, SINGLE
     Route: 030
     Dates: start: 20081118, end: 20081118
  5. BOTOX COSMETIC [Suspect]
     Dosage: 34 UNITS, SINGLE
     Route: 030
     Dates: start: 20090603, end: 20090603

REACTIONS (1)
  - EYELID PTOSIS [None]
